FAERS Safety Report 12442943 (Version 1)
Quarter: 2016Q2

REPORT INFORMATION
  Report Type: Spontaneous
  Country: US (occurrence: US)
  Receive Date: 20160607
  Receipt Date: 20160607
  Transmission Date: 20160815
  Serious: No
  Sender: FDA-Public Use
  Company Number: US-ACTAVIS-2015-14066

PATIENT
  Sex: Male
  Weight: 76 kg

DRUGS (13)
  1. LORAZEPAM. [Concomitant]
     Active Substance: LORAZEPAM
     Indication: ANXIETY
     Dosage: .5 MG, DAILY
  2. LORAZEPAM. [Concomitant]
     Active Substance: LORAZEPAM
     Dosage: 1 MG, UNK
  3. GABAPENTIN (AELLC) [Suspect]
     Active Substance: GABAPENTIN
     Indication: NEUROPATHY PERIPHERAL
     Dosage: 100 MG, DAILY
     Route: 065
     Dates: start: 2014
  4. GABAPENTIN (AELLC) [Suspect]
     Active Substance: GABAPENTIN
     Dosage: 300 MG, PRN
  5. FINASTERIDE. [Concomitant]
     Active Substance: FINASTERIDE
     Indication: PROSTATOMEGALY
     Dosage: 5 MG, DAILY
  6. DILANTIN [Suspect]
     Active Substance: PHENYTOIN
     Indication: SEIZURE
     Dosage: 100 MG, QID
     Route: 065
     Dates: start: 2013
  7. OMEPRAZOLE-GA [Suspect]
     Active Substance: OMEPRAZOLE
     Indication: GASTRIC PH DECREASED
     Dosage: 20 MG, DAILY
     Route: 065
  8. OMEPRAZOLE-GA [Suspect]
     Active Substance: OMEPRAZOLE
     Dosage: 20 UNK, UNK
  9. ASPIRIN. [Concomitant]
     Active Substance: ASPIRIN
     Indication: ANTIPLATELET THERAPY
     Dosage: 81 MG, DAILY
  10. TAMSOLIN [Concomitant]
     Indication: PRODUCT USED FOR UNKNOWN INDICATION
     Dosage: .4 MG, DAILY
     Route: 065
  11. GABAPENTIN (AELLC) [Suspect]
     Active Substance: GABAPENTIN
     Dosage: 300 MG, QPM
     Dates: start: 2014
  12. DILANTIN [Suspect]
     Active Substance: PHENYTOIN
     Dosage: 300 MG, UNK
     Dates: start: 2013
  13. FLUDROCORTISON [Concomitant]
     Active Substance: FLUDROCORTISONE
     Indication: BLOOD PRESSURE MEASUREMENT
     Dosage: 0.1 MG, UNK

REACTIONS (2)
  - Constipation [Recovered/Resolved]
  - Myalgia [Recovered/Resolved]
